FAERS Safety Report 5501511-8 (Version None)
Quarter: 2007Q4

REPORT INFORMATION
  Report Type: 
  Country: None (occurrence: None)
  Receive Date: 20071030
  Receipt Date: 20071024
  Transmission Date: 20080405
  Serious: Yes (Hospitalization, Other)
  Sender: FDA-Public Use
  Company Number: PHEH2007US14010

PATIENT
  Age: 76 Year
  Sex: Male
  Weight: 168 kg

DRUGS (6)
  1. ZOCOR [Concomitant]
  2. LOTREL [Concomitant]
  3. LEVOTHYROXINE SODIUM [Concomitant]
  4. ALLOPURINOL [Concomitant]
  5. IBUPROFEN [Concomitant]
  6. GLEEVEC [Suspect]
     Indication: CHRONIC MYELOID LEUKAEMIA
     Dosage: 400 MG, QD
     Route: 048
     Dates: start: 20070703, end: 20070820

REACTIONS (3)
  - BRAIN NATRIURETIC PEPTIDE INCREASED [None]
  - CARDIAC FAILURE CONGESTIVE [None]
  - HYPOTENSION [None]
